FAERS Safety Report 10729575 (Version 1)
Quarter: 2015Q1

REPORT INFORMATION
  Report Type: Spontaneous
  Country: US (occurrence: US)
  Receive Date: 20150122
  Receipt Date: 20150122
  Transmission Date: 20150721
  Serious: Yes (Other)
  Sender: FDA-Public Use
  Company Number: US-SA-2015SA005832

PATIENT
  Age: 66 Year
  Sex: Female

DRUGS (8)
  1. DIPHENHYDRAMINE [Concomitant]
     Active Substance: DIPHENHYDRAMINE
     Indication: PREMEDICATION
     Route: 042
  2. ANTI-THYMOCYTE GLOBULIN (RABBIT)/RABBIT ANTI-HUMAN THYMOCYTE IMMUNOGLOBULIN [Suspect]
     Active Substance: LAPINE T-LYMPHOCYTE IMMUNE GLOBULIN
     Indication: BONE MARROW CONDITIONING REGIMEN
     Route: 041
  3. POTASSIUM CHLORIDE. [Concomitant]
     Active Substance: POTASSIUM CHLORIDE
     Route: 048
  4. ANTI-THYMOCYTE GLOBULIN (RABBIT)/RABBIT ANTI-HUMAN THYMOCYTE IMMUNOGLOBULIN [Suspect]
     Active Substance: LAPINE T-LYMPHOCYTE IMMUNE GLOBULIN
     Indication: BONE MARROW CONDITIONING REGIMEN
     Route: 041
  5. ACETAMINOPHEN. [Concomitant]
     Active Substance: ACETAMINOPHEN
     Indication: PREMEDICATION
     Route: 048
  6. METHYLPREDNISOLONE. [Suspect]
     Active Substance: METHYLPREDNISOLONE
     Indication: PREMEDICATION
     Route: 042
  7. FLUTICASONE PROPIONATE. [Concomitant]
     Active Substance: FLUTICASONE PROPIONATE
     Dosage: NASAL SPRAY
     Route: 045
  8. LOSARTAN [Concomitant]
     Active Substance: LOSARTAN
     Route: 048

REACTIONS (10)
  - Aspartate aminotransferase increased [Recovered/Resolved]
  - Blood bilirubin increased [None]
  - Headache [Unknown]
  - Serum ferritin increased [None]
  - Blood alkaline phosphatase increased [None]
  - Hepatic function abnormal [Recovered/Resolved]
  - Liver injury [None]
  - Transplant [None]
  - Alanine aminotransferase increased [Recovered/Resolved]
  - Chills [Unknown]
